FAERS Safety Report 10736304 (Version 1)
Quarter: 2015Q1

REPORT INFORMATION
  Report Type: Spontaneous
  Country: US (occurrence: None)
  Receive Date: 20150122
  Receipt Date: 20150122
  Transmission Date: 20150721
  Serious: No
  Sender: FDA-Public Use
  Company Number: None

PATIENT
  Age: 10 Year
  Sex: Male
  Weight: 49.9 kg

DRUGS (1)
  1. SULFAMETHOXAZOLE AUROBINDO PHARMACY [Suspect]
     Active Substance: SULFAMETHOXAZOLE
     Indication: IMPETIGO
     Dosage: 20 PILLS, TWICE DAILY, TAKEN BY MOUTH
     Route: 048
     Dates: start: 20150113, end: 20150119

REACTIONS (3)
  - Diet refusal [None]
  - Dysphagia [None]
  - Throat tightness [None]

NARRATIVE: CASE EVENT DATE: 20150115
